FAERS Safety Report 4456009-5 (Version None)
Quarter: 2004Q3

REPORT INFORMATION
  Report Type: 
  Country: None (occurrence: None)
  Receive Date: 20040920
  Receipt Date: 20040903
  Transmission Date: 20050211
  Serious: Yes (Life-Threatening, Hospitalization)
  Sender: FDA-Public Use
  Company Number: 2004-BP-07186NB

PATIENT
  Age: 73 Year
  Sex: Female

DRUGS (10)
  1. MICARDIS [Suspect]
     Indication: HYPERTENSION
     Dosage: 20 MG (20 MG)
     Route: 048
     Dates: start: 20040821, end: 20040823
  2. SIGMART (NICORANDIL) [Concomitant]
  3. DIGOXIN [Concomitant]
  4. TICLOPIDINE HCL [Concomitant]
  5. MUCOSTA (REBAMIPIDE) [Concomitant]
  6. LEVOTHYROXINE SODIUM [Concomitant]
  7. ASPIRIN [Concomitant]
  8. HUMALOG [Concomitant]
  9. HUMACART N [Concomitant]
  10. CIBEROL (CIBENZOLINE SUCCINATE) [Concomitant]

REACTIONS (6)
  - BLOOD CREATININE INCREASED [None]
  - BLOOD PRESSURE DECREASED [None]
  - DIZZINESS [None]
  - HYPERKALAEMIA [None]
  - NAUSEA [None]
  - PALPITATIONS [None]
